FAERS Safety Report 23908977 (Version 2)
Quarter: 2024Q2

REPORT INFORMATION
  Report Type: Spontaneous
  Country: US (occurrence: US)
  Receive Date: 20240528
  Receipt Date: 20240606
  Transmission Date: 20240715
  Serious: No
  Sender: FDA-Public Use
  Company Number: US-E2BLSMVVAL-SPO/USA/24/0007223

PATIENT
  Sex: Male

DRUGS (2)
  1. BUPRENORPHINE\NALOXONE [Suspect]
     Active Substance: BUPRENORPHINE\NALOXONE
     Indication: Allergic sinusitis
     Route: 060
  2. NOSE SPRAY [Concomitant]
     Indication: Product used for unknown indication
     Route: 065

REACTIONS (4)
  - Intentional underdose [Unknown]
  - Brain fog [Unknown]
  - Dizziness [Unknown]
  - Wrong technique in product usage process [Unknown]
